FAERS Safety Report 22039128 (Version 1)
Quarter: 2023Q1

REPORT INFORMATION
  Report Type: Spontaneous
  Country: GB (occurrence: GB)
  Receive Date: 20230227
  Receipt Date: 20230227
  Transmission Date: 20230417
  Serious: Yes (Disabling, Other)
  Sender: FDA-Public Use
  Company Number: None

PATIENT
  Age: 79 Year
  Sex: Male
  Weight: 72 kg

DRUGS (3)
  1. AMITRIPTYLINE [Suspect]
     Active Substance: AMITRIPTYLINE
     Indication: Neuropathy peripheral
     Dosage: NIGHT
     Dates: start: 20230130, end: 20230209
  2. ATORVASTATIN [Concomitant]
     Active Substance: ATORVASTATIN
     Dates: start: 1991
  3. PERINDOPRIL [Concomitant]
     Active Substance: PERINDOPRIL
     Dates: start: 1991

REACTIONS (5)
  - Depression [Recovered/Resolved]
  - Confusional state [Unknown]
  - Lethargy [Unknown]
  - Fatigue [Unknown]
  - Mental impairment [Unknown]

NARRATIVE: CASE EVENT DATE: 20230203
